FAERS Safety Report 9057506 (Version 1)
Quarter: 2013Q1

REPORT INFORMATION
  Report Type: Spontaneous
  Country: US (occurrence: None)
  Receive Date: 20130204
  Receipt Date: 20130204
  Transmission Date: 20140127
  Serious: Yes (Other)
  Sender: FDA-Public Use
  Company Number: None

PATIENT
  Age: 34 Year
  Sex: Female
  Weight: 68.04 kg

DRUGS (1)
  1. PREDNISONE [Suspect]
     Indication: INNER EAR INFLAMMATION
     Route: 048
     Dates: start: 20130118, end: 20130121

REACTIONS (9)
  - Photophobia [None]
  - Agitation [None]
  - Blood pressure [None]
  - Paraesthesia [None]
  - Heart rate increased [None]
  - Speech disorder [None]
  - Muscle spasms [None]
  - Dyspnoea [None]
  - Muscle twitching [None]
